FAERS Safety Report 14846004 (Version 1)
Quarter: 2018Q2

REPORT INFORMATION
  Report Type: Spontaneous
  Country: FR (occurrence: FR)
  Receive Date: 20180504
  Receipt Date: 20180504
  Transmission Date: 20180711
  Serious: Yes (Other)
  Sender: FDA-Public Use
  Company Number: FR-MERCK KGAA-2047181

PATIENT
  Age: 47 Year
  Sex: Female

DRUGS (1)
  1. NOVOTHYROX [Suspect]
     Active Substance: LEVOTHYROXINE SODIUM
     Indication: POST PROCEDURAL HYPOTHYROIDISM
     Dates: start: 2017, end: 20170911

REACTIONS (22)
  - Hyperthyroidism [Recovering/Resolving]
  - Vomiting [Recovering/Resolving]
  - Feeling abnormal [Recovering/Resolving]
  - Depressed mood [Recovering/Resolving]
  - Personal relationship issue [Recovering/Resolving]
  - Thyroglobulin decreased [Recovering/Resolving]
  - Malaise [Recovering/Resolving]
  - Hypertension [Recovering/Resolving]
  - Blood pressure increased [Recovering/Resolving]
  - Blood cholesterol increased [Recovering/Resolving]
  - Dizziness [Recovering/Resolving]
  - Loss of personal independence in daily activities [Recovering/Resolving]
  - Tension [Recovering/Resolving]
  - Nausea [Recovering/Resolving]
  - Decreased interest [Recovering/Resolving]
  - Blood alkaline phosphatase increased [Recovering/Resolving]
  - Performance fear [Recovering/Resolving]
  - Housebound [Recovering/Resolving]
  - Social avoidant behaviour [Recovering/Resolving]
  - Blood uric acid increased [Recovering/Resolving]
  - Crying [Recovering/Resolving]
  - Thyroxine free increased [Recovering/Resolving]

NARRATIVE: CASE EVENT DATE: 2017
